FAERS Safety Report 10923941 (Version 1)
Quarter: 2015Q1

REPORT INFORMATION
  Report Type: Spontaneous
  Country: US (occurrence: US)
  Receive Date: 20150318
  Receipt Date: 20150318
  Transmission Date: 20150721
  Serious: No
  Sender: FDA-Public Use
  Company Number: US-BIOGENIDEC-2015BI031077

PATIENT
  Age: 61 Year
  Sex: Female

DRUGS (2)
  1. TECFIDERA [Suspect]
     Active Substance: DIMETHYL FUMARATE
     Indication: MULTIPLE SCLEROSIS
     Dates: start: 20140716, end: 20141119
  2. RESTASIS (CYCLOSPORINE) [Concomitant]
     Indication: DRY EYE
     Dates: start: 2014

REACTIONS (8)
  - Photopsia [Unknown]
  - Renal pain [Unknown]
  - Nasal dryness [Unknown]
  - Ear disorder [Unknown]
  - Ocular discomfort [Unknown]
  - Dry eye [Unknown]
  - Photophobia [Unknown]
  - Cystitis [Unknown]
